FAERS Safety Report 9669510 (Version 1)
Quarter: 2013Q4

REPORT INFORMATION
  Report Type: Spontaneous
  Country: US (occurrence: None)
  Receive Date: 20131104
  Receipt Date: 20131104
  Transmission Date: 20140711
  Serious: Yes (Life-Threatening, Other)
  Sender: FDA-Public Use
  Company Number: None

PATIENT
  Age: 53 Year
  Sex: Female
  Weight: 58.97 kg

DRUGS (2)
  1. CLONAZEPAM [Suspect]
     Indication: POST-TRAUMATIC STRESS DISORDER
     Route: 048
  2. CLONAZEPAM [Suspect]
     Indication: CONVULSION
     Route: 048

REACTIONS (2)
  - Convulsion [None]
  - Drug withdrawal syndrome [None]
